FAERS Safety Report 16055648 (Version 1)
Quarter: 2019Q1

REPORT INFORMATION
  Report Type: Spontaneous
  Country: CN (occurrence: CN)
  Receive Date: 20190311
  Receipt Date: 20190311
  Transmission Date: 20190418
  Serious: Yes (Other)
  Sender: FDA-Public Use
  Company Number: CN-ROCHE-2266867

PATIENT
  Age: 60 Year
  Sex: Male

DRUGS (16)
  1. MABTHERA [Suspect]
     Active Substance: RITUXIMAB
     Indication: DIFFUSE LARGE B-CELL LYMPHOMA
     Dosage: DAY 0
     Route: 065
     Dates: start: 20170124, end: 20170726
  2. RITUXIMAB. [Suspect]
     Active Substance: RITUXIMAB
     Indication: DIFFUSE LARGE B-CELL LYMPHOMA
     Route: 065
     Dates: start: 20180316
  3. CYCLOPHOSPHAMIDE. [Concomitant]
     Active Substance: CYCLOPHOSPHAMIDE
     Indication: DIFFUSE LARGE B-CELL LYMPHOMA
     Dosage: DAY 1
     Route: 065
     Dates: start: 20170124, end: 20170726
  4. VINCRISTINE [Concomitant]
     Active Substance: VINCRISTINE
     Route: 065
     Dates: start: 20180401
  5. ADRIAMYCIN [Concomitant]
     Active Substance: DOXORUBICIN HYDROCHLORIDE
     Indication: DIFFUSE LARGE B-CELL LYMPHOMA
     Dosage: DAY 1
     Route: 065
     Dates: start: 20170124, end: 20170726
  6. CYCLOPHOSPHAMIDE. [Concomitant]
     Active Substance: CYCLOPHOSPHAMIDE
     Route: 065
     Dates: start: 20180316
  7. CYCLOPHOSPHAMIDE. [Concomitant]
     Active Substance: CYCLOPHOSPHAMIDE
     Route: 065
     Dates: start: 20180401
  8. ADRIAMYCIN [Concomitant]
     Active Substance: DOXORUBICIN HYDROCHLORIDE
     Route: 065
     Dates: start: 20180316
  9. ADRIAMYCIN [Concomitant]
     Active Substance: DOXORUBICIN HYDROCHLORIDE
     Route: 065
     Dates: start: 20180401
  10. VINCRISTINE [Concomitant]
     Active Substance: VINCRISTINE
     Route: 065
     Dates: start: 20180316
  11. PREDNISONE. [Concomitant]
     Active Substance: PREDNISONE
     Route: 065
     Dates: start: 20180316
  12. PREDNISONE. [Concomitant]
     Active Substance: PREDNISONE
     Route: 065
     Dates: start: 20180401
  13. ZOLEDRONIC ACID [Concomitant]
     Active Substance: ZOLEDRONIC ACID
     Dosage: INPUT MONTHLY
     Route: 065
  14. RITUXIMAB. [Suspect]
     Active Substance: RITUXIMAB
     Route: 065
     Dates: start: 20180401
  15. PREDNISONE. [Concomitant]
     Active Substance: PREDNISONE
     Indication: DIFFUSE LARGE B-CELL LYMPHOMA
     Dosage: DAY 1 TO DAY 5
     Route: 065
     Dates: start: 20170124, end: 20170726
  16. VINCRISTINE [Concomitant]
     Active Substance: VINCRISTINE
     Indication: DIFFUSE LARGE B-CELL LYMPHOMA
     Dosage: DAY 1
     Route: 065
     Dates: start: 20170124, end: 20170726

REACTIONS (12)
  - Diplopia [Unknown]
  - Oropharyngeal pain [Unknown]
  - Interstitial lung disease [Unknown]
  - Nausea [Unknown]
  - Facial pain [Unknown]
  - Cystic lung disease [Unknown]
  - Tinnitus [Unknown]
  - Ear pain [Unknown]
  - Swelling [Unknown]
  - Dizziness [Unknown]
  - Dysphagia [Unknown]
  - Sinusitis [Unknown]

NARRATIVE: CASE EVENT DATE: 201801
